FAERS Safety Report 17395454 (Version 1)
Quarter: 2020Q1

REPORT INFORMATION
  Report Type: Spontaneous
  Country: US (occurrence: US)
  Receive Date: 20200210
  Receipt Date: 20200210
  Transmission Date: 20200409
  Serious: Yes (Other)
  Sender: FDA-Public Use
  Company Number: US-JUBILANT PHARMA LTD-2020US000045

PATIENT
  Age: 39 Year
  Sex: Male

DRUGS (1)
  1. SODIUM IODIDE I-131. [Suspect]
     Active Substance: SODIUM IODIDE I-131
     Indication: BASEDOW^S DISEASE
     Dosage: 12.5 MCI, SINGLE DOSE

REACTIONS (5)
  - Jaundice cholestatic [Recovered/Resolved]
  - Hypertensive heart disease [Recovered/Resolved]
  - Pruritus [Recovered/Resolved]
  - Hypothyroidism [Not Recovered/Not Resolved]
  - Thyrotoxic crisis [Recovered/Resolved]
